FAERS Safety Report 4618949-3 (Version None)
Quarter: 2005Q1

REPORT INFORMATION
  Report Type: 
  Country: None (occurrence: None)
  Receive Date: 20050325
  Receipt Date: 20050315
  Transmission Date: 20050727
  Serious: Yes (Life-Threatening, Hospitalization)
  Sender: FDA-Public Use
  Company Number: CZ-JNJFOC-20050303702

PATIENT
  Sex: Female

DRUGS (5)
  1. REMICADE [Suspect]
     Indication: RHEUMATOID ARTHRITIS
     Route: 042
  2. PREDNISON [Concomitant]
     Route: 049
  3. MINIDIAB [Concomitant]
  4. DICLOFENAC [Concomitant]
  5. METHOTREXATE [Concomitant]

REACTIONS (4)
  - CANDIDIASIS [None]
  - ENCEPHALITIS [None]
  - HERPES SIMPLEX SEROLOGY POSITIVE [None]
  - PNEUMONIA [None]
